FAERS Safety Report 5463766-8 (Version None)
Quarter: 2007Q3

REPORT INFORMATION
  Report Type: 
  Country: None (occurrence: None)
  Receive Date: 20070920
  Receipt Date: 20070917
  Transmission Date: 20080115
  Serious: No
  Sender: FDA-Public Use
  Company Number: US-BOEHRINGER INGELHEIM PHARMACEUTICALS, INC.-2005-BP-15536BP

PATIENT
  Age: 82 Year
  Sex: Male
  Weight: 68 kg

DRUGS (4)
  1. FLOMAX [Suspect]
     Indication: BENIGN PROSTATIC HYPERPLASIA
     Route: 048
     Dates: start: 20050830
  2. ASPIRIN [Concomitant]
  3. VITAMIN E [Concomitant]
  4. MULTI-VITAMIN [Concomitant]

REACTIONS (10)
  - ABDOMINAL DISTENSION [None]
  - ABDOMINAL PAIN [None]
  - CHROMATURIA [None]
  - DIARRHOEA [None]
  - DRUG INEFFECTIVE [None]
  - DYSURIA [None]
  - FLATULENCE [None]
  - INSOMNIA [None]
  - RETROGRADE EJACULATION [None]
  - URINARY INCONTINENCE [None]
